FAERS Safety Report 5367511-6 (Version None)
Quarter: 2007Q2

REPORT INFORMATION
  Report Type: 
  Country: None (occurrence: None)
  Receive Date: 20070622
  Receipt Date: 20061006
  Transmission Date: 20071010
  Serious: No
  Sender: FDA-Public Use
  Company Number: US-ASTRAZENECA-2006UW19496

PATIENT
  Age: 2 Year
  Sex: Male
  Weight: 14.5 kg

DRUGS (2)
  1. PULMICORT RESPULES [Suspect]
     Route: 055
     Dates: start: 20060101
  2. SINGULAIR [Concomitant]

REACTIONS (3)
  - COUGH [None]
  - ILL-DEFINED DISORDER [None]
  - RHINORRHOEA [None]
